FAERS Safety Report 10527061 (Version 4)
Quarter: 2014Q4

REPORT INFORMATION
  Report Type: Report from Study
  Country: US (occurrence: US)
  Receive Date: 20141020
  Receipt Date: 20141106
  Transmission Date: 20150528
  Serious: Yes (Hospitalization)
  Sender: FDA-Public Use
  Company Number: US-MERCK-1408USA012731

PATIENT
  Age: 66 Year
  Sex: Female
  Weight: 68 kg

DRUGS (16)
  1. COMPAZINE (PROCHLORPERAZINE MALEATE) [Concomitant]
     Indication: NAUSEA
     Dosage: STRENGTH 10, UNITS NOT REPORTED, PRN
     Route: 048
     Dates: start: 20140731
  2. SODIUM CHLORIDE. [Concomitant]
     Active Substance: SODIUM CHLORIDE
     Indication: DEHYDRATION
     Dosage: TOTAL DAILY DOSE 2000 ML,  ONCE
     Route: 042
     Dates: start: 20140731, end: 20140731
  3. PEMBROLIZUMAB. [Suspect]
     Active Substance: PEMBROLIZUMAB
     Indication: NEOPLASM MALIGNANT
     Dosage: 10 MG/KG, QOW
     Route: 042
     Dates: start: 20140414, end: 20140715
  4. SENNA LAX (SENNOSIDES) [Concomitant]
     Indication: CONSTIPATION
     Dosage: UNK, QD
     Route: 048
     Dates: start: 20130319, end: 20140812
  5. SODIUM PHOSPHATE, DIBASIC [Concomitant]
     Active Substance: SODIUM PHOSPHATE, DIBASIC
     Indication: CONSTIPATION
     Dosage: TOTAL DAILY DOSE 118ML, PRN
     Route: 054
     Dates: start: 20140731, end: 20140805
  6. MORPHINE [Concomitant]
     Active Substance: MORPHINE
     Indication: ABDOMINAL PAIN
     Dosage: TOTAL DAILY DOSE: 2 MG, ONCE
     Route: 042
     Dates: start: 20140805, end: 20140805
  7. IBUPROFEN. [Concomitant]
     Active Substance: IBUPROFEN
     Indication: HEADACHE
     Dosage: TOTAL DAILY DOSE 200 MG, PRN
     Route: 048
     Dates: start: 201312
  8. OXYCODONE [Concomitant]
     Active Substance: OXYCODONE
     Indication: PAIN
     Dosage: STRENGTH 5, UNITS NOT REPORTED; PRN
     Route: 048
     Dates: start: 20120824
  9. LEVOTHYROXINE SODIUM. [Concomitant]
     Active Substance: LEVOTHYROXINE SODIUM
     Indication: HYPOTHYROIDISM
     Dosage: 125 MICROGRAM, QD
     Route: 048
     Dates: start: 199110
  10. LACTULOSE. [Concomitant]
     Active Substance: LACTULOSE
     Indication: CONSTIPATION
     Dosage: TOTAL DAILY DOSE 5 ML,PRN
     Route: 048
     Dates: start: 20140731
  11. MORPHINE [Concomitant]
     Active Substance: MORPHINE
     Indication: CONSTIPATION
  12. POTASSIUM CHLORIDE. [Concomitant]
     Active Substance: POTASSIUM CHLORIDE
     Indication: HYPOKALAEMIA
     Dosage: TOTAL DAILY DOSE: 40 MEQ, ONCE
     Route: 042
     Dates: start: 20140817, end: 20140817
  13. PEMBROLIZUMAB. [Suspect]
     Active Substance: PEMBROLIZUMAB
     Dosage: 10 MG/KG, QOW
     Route: 042
     Dates: start: 20140814, end: 20140814
  14. ZOMETA [Concomitant]
     Active Substance: ZOLEDRONIC ACID
     Indication: BONE DISORDER
     Dosage: 4 MG, QM
     Route: 042
     Dates: start: 20120112
  15. OXYCODONE HYDROCHLORIDE. [Concomitant]
     Active Substance: OXYCODONE HYDROCHLORIDE
     Indication: PAIN
     Dosage: 10 MG, BID
     Route: 048
     Dates: start: 20140731
  16. ZOFRAN [Concomitant]
     Active Substance: ONDANSETRON HYDROCHLORIDE
     Indication: NAUSEA
     Dosage: 8 MG, TID
     Route: 048
     Dates: start: 20140801, end: 20140817

REACTIONS (3)
  - Gastritis [Recovered/Resolved]
  - Gastroenteritis radiation [Recovered/Resolved]
  - Helicobacter infection [Recovered/Resolved]

NARRATIVE: CASE EVENT DATE: 20140815
